FAERS Safety Report 4913762-1 (Version None)
Quarter: 2006Q1

REPORT INFORMATION
  Report Type: 
  Country: None (occurrence: None)
  Receive Date: 20060216
  Receipt Date: 20060104
  Transmission Date: 20060701
  Serious: Yes (Hospitalization)
  Sender: FDA-Public Use
  Company Number: US-GLAXOSMITHKLINE-A0588890A

PATIENT
  Age: 13 Year
  Sex: Female

DRUGS (3)
  1. PAXIL CR [Suspect]
     Dosage: 25MG PER DAY
     Route: 048
     Dates: start: 20021001, end: 20030101
  2. TYLENOL [Suspect]
     Route: 048
  3. DEPAKOTE [Concomitant]
     Dosage: 500MG PER DAY
     Route: 048

REACTIONS (9)
  - ABNORMAL BEHAVIOUR [None]
  - CONFUSIONAL STATE [None]
  - DIZZINESS [None]
  - OVERDOSE [None]
  - SCAR [None]
  - SELF MUTILATION [None]
  - SUICIDE ATTEMPT [None]
  - THERMAL BURN [None]
  - VOMITING [None]
